FAERS Safety Report 7200923 (Version 4)
Quarter: 2013Q1

REPORT INFORMATION
  Report Type: Spontaneous
  Country: US (occurrence: US)
  Receive Date: 20091204
  Receipt Date: 20130307
  Transmission Date: 20140127
  Serious: Yes (Hospitalization, Other)
  Sender: FDA-Public Use
  Company Number: US-PFIZER INC-2009305095

PATIENT
  Age: 16 Year
  Sex: Male

DRUGS (15)
  1. ZIPRASIDONE HCL [Suspect]
     Indication: TIC
  2. FLUOXETINE HCL [Interacting]
     Indication: ANXIETY
     Dosage: 30MG
     Route: 048
  3. HALOPERIDOL [Suspect]
     Indication: TOURETTE^S DISORDER
  4. MIDAZOLAM [Suspect]
     Indication: TIC
     Route: 042
  5. RISPERIDONE [Suspect]
     Indication: TOURETTE^S DISORDER
     Dosage: 0.5 MG, 1X/DAY
  6. RISPERIDONE [Suspect]
     Dosage: 5 MG, UNK
  7. LEVETIRACETAM [Suspect]
  8. TOPIRAMATE [Suspect]
     Indication: DECREASED APPETITE
  9. ZOLPIDEM TARTRATE [Suspect]
     Dosage: 10 MG, 2X/DAY (EVERY 12 HOURS)
  10. TETRABENAZINE [Suspect]
     Dosage: 12.5 MG, 1X/DAY
  11. OXCARBAZEPINE [Suspect]
  12. PIMOZIDE [Interacting]
  13. ARIPIPRAZOLE [Suspect]
     Dosage: 10 MG, 2X/DAY
  14. BENZATROPINE [Suspect]
     Indication: TOURETTE^S DISORDER
     Dosage: 0.5 MG, 2X/DAY
  15. FLUPHENAZINE [Suspect]
     Dosage: 1 MG, UNK

REACTIONS (14)
  - Drug interaction [Unknown]
  - Toxicity to various agents [Unknown]
  - Electrocardiogram QT prolonged [Recovered/Resolved]
  - Suicidal ideation [Unknown]
  - Depression [Recovered/Resolved]
  - Blood prolactin increased [Unknown]
  - Weight increased [Unknown]
  - Lethargy [Unknown]
  - Musculoskeletal stiffness [Unknown]
  - Tic [Recovering/Resolving]
  - Decreased appetite [Unknown]
  - Galactorrhoea [Unknown]
  - Affective disorder [Unknown]
  - Loss of consciousness [Unknown]
